FAERS Safety Report 4312621-5 (Version None)
Quarter: 2004Q1

REPORT INFORMATION
  Report Type: 
  Country: None (occurrence: None)
  Receive Date: 20040302
  Receipt Date: 20031219
  Transmission Date: 20041129
  Serious: No
  Sender: FDA-Public Use
  Company Number: 200330709BWH

PATIENT
  Age: 62 Year
  Sex: Male
  Weight: 74.8435 kg

DRUGS (6)
  1. LEVITRA [Suspect]
     Indication: ERECTILE DYSFUNCTION
     Dosage: 20 MG TOTAL DAILY ORAL
     Route: 048
     Dates: start: 20031206
  2. LEVITRA [Suspect]
     Indication: ERECTILE DYSFUNCTION
     Dosage: 20 MG TOTAL DAILY ORAL
     Route: 048
     Dates: start: 20031208
  3. WELLBUTRIN [Concomitant]
  4. LORAZEPAM [Concomitant]
  5. ASPIRIN [Concomitant]
  6. VIAGRA [Concomitant]

REACTIONS (1)
  - ERECTILE DYSFUNCTION [None]
